FAERS Safety Report 5528435-4 (Version None)
Quarter: 2007Q4

REPORT INFORMATION
  Report Type: 
  Country: None (occurrence: None)
  Receive Date: 20071128
  Receipt Date: 20071115
  Transmission Date: 20080405
  Serious: No
  Sender: FDA-Public Use
  Company Number: US-BOEHRINGER INGELHEIM PHARMACEUTICALS, INC.-2007-BP-24678BP

PATIENT
  Age: 50 Year
  Sex: Male

DRUGS (7)
  1. SPIRIVA [Suspect]
     Indication: CHRONIC OBSTRUCTIVE PULMONARY DISEASE
     Route: 055
     Dates: start: 20071001
  2. ADVAIR DISKUS 100/50 [Concomitant]
  3. FLUCONAZOLE [Concomitant]
     Dates: start: 20071001
  4. REQUIP [Concomitant]
  5. SINGULAIR [Concomitant]
  6. NASACORT AQ [Concomitant]
  7. MUCINEX DM [Concomitant]

REACTIONS (4)
  - CHAPPED LIPS [None]
  - LIP EXFOLIATION [None]
  - PRURITUS [None]
  - SKIN EXFOLIATION [None]
